FAERS Safety Report 17040020 (Version 42)
Quarter: 2025Q2

REPORT INFORMATION
  Report Type: Report from Study
  Country: US (occurrence: US)
  Receive Date: 20191116
  Receipt Date: 20250522
  Transmission Date: 20250716
  Serious: Yes (Hospitalization, Other)
  Sender: TAKEDA
  Company Number: US-SHIRE-US201939284

PATIENT
  Sex: Male
  Weight: 163 kg

DRUGS (106)
  1. HUMAN IMMUNOGLOBULIN G [Suspect]
     Active Substance: HUMAN IMMUNOGLOBULIN G
     Indication: Immunodeficiency common variable
     Dosage: 25 GRAM, Q3WEEKS
     Dates: start: 20190416
  2. HUMAN IMMUNOGLOBULIN G [Suspect]
     Active Substance: HUMAN IMMUNOGLOBULIN G
     Indication: Dehydration
     Dosage: 25 GRAM, Q2WEEKS
     Dates: start: 20190417
  3. HUMAN IMMUNOGLOBULIN G [Suspect]
     Active Substance: HUMAN IMMUNOGLOBULIN G
  4. HUMAN IMMUNOGLOBULIN G [Suspect]
     Active Substance: HUMAN IMMUNOGLOBULIN G
     Dosage: 25 GRAM, Q2WEEKS
     Dates: start: 20190709
  5. HUMAN IMMUNOGLOBULIN G [Suspect]
     Active Substance: HUMAN IMMUNOGLOBULIN G
  6. HUMAN IMMUNOGLOBULIN G [Suspect]
     Active Substance: HUMAN IMMUNOGLOBULIN G
     Dosage: 25 GRAM, Q2WEEKS
  7. HUMAN IMMUNOGLOBULIN G [Suspect]
     Active Substance: HUMAN IMMUNOGLOBULIN G
     Dosage: 25 GRAM, Q2WEEKS
  8. HUMAN IMMUNOGLOBULIN G [Suspect]
     Active Substance: HUMAN IMMUNOGLOBULIN G
  9. HEPARIN [Concomitant]
     Active Substance: HEPARIN SODIUM
  10. DIPHENHYDRAMINE HYDROCHLORIDE [Concomitant]
     Active Substance: DIPHENHYDRAMINE HYDROCHLORIDE
  11. RITUXAN [Concomitant]
     Active Substance: RITUXIMAB
  12. AZELASTINE HYDROCHLORIDE [Concomitant]
     Active Substance: AZELASTINE HYDROCHLORIDE
  13. HYDROXYZINE HYDROCHLORIDE [Concomitant]
     Active Substance: HYDROXYZINE HYDROCHLORIDE
  14. FUROSEMIDE [Concomitant]
     Active Substance: FUROSEMIDE
  15. SODIUM CHLORIDE [Concomitant]
     Active Substance: SODIUM CHLORIDE
  16. EPINEPHRINE [Concomitant]
     Active Substance: EPINEPHRINE
  17. LYRICA [Concomitant]
     Active Substance: PREGABALIN
  18. LIOTHYRONINE SODIUM [Concomitant]
     Active Substance: LIOTHYRONINE SODIUM
  19. HUMULIN R [Concomitant]
     Active Substance: INSULIN HUMAN
  20. PRAZOSIN HYDROCHLORIDE [Concomitant]
     Active Substance: PRAZOSIN HYDROCHLORIDE
  21. VANCOMYCIN HYDROCHLORIDE [Concomitant]
     Active Substance: VANCOMYCIN HYDROCHLORIDE
  22. AUVI-Q [Concomitant]
     Active Substance: EPINEPHRINE
  23. PREDNISONE [Concomitant]
     Active Substance: PREDNISONE
  24. AFRIN [Concomitant]
     Active Substance: OXYMETAZOLINE HYDROCHLORIDE
  25. ASPIRIN [Concomitant]
     Active Substance: ASPIRIN
  26. PROCRIT [Concomitant]
     Active Substance: ERYTHROPOIETIN
  27. SUDAFED [Concomitant]
     Active Substance: PSEUDOEPHEDRINE HYDROCHLORIDE
  28. HYDROMORPHONE [Concomitant]
     Active Substance: HYDROMORPHONE
  29. ATROVENT HFA [Concomitant]
     Active Substance: IPRATROPIUM BROMIDE
  30. CEFTRIAXONE [Concomitant]
     Active Substance: CEFTRIAXONE
  31. COMPAZINE [Concomitant]
     Active Substance: PROCHLORPERAZINE MALEATE
  32. ACETAMINOPHEN [Concomitant]
     Active Substance: ACETAMINOPHEN
  33. METRONIDAZOLE [Concomitant]
     Active Substance: METRONIDAZOLE
  34. SYNTHROID [Concomitant]
     Active Substance: LEVOTHYROXINE SODIUM
  35. NASONEX [Concomitant]
     Active Substance: MOMETASONE FUROATE
  36. FLUDROCORTISONE ACETATE [Concomitant]
     Active Substance: FLUDROCORTISONE ACETATE
  37. TYLENOL EXTRA STRENGTH [Concomitant]
     Active Substance: ACETAMINOPHEN
  38. SEROQUEL [Concomitant]
     Active Substance: QUETIAPINE FUMARATE
  39. HUMALOG [Concomitant]
     Active Substance: INSULIN LISPRO
  40. OXYGEN [Concomitant]
     Active Substance: OXYGEN
  41. URSODIOL [Concomitant]
     Active Substance: URSODIOL
  42. RAPAFLO [Concomitant]
     Active Substance: SILODOSIN
  43. VITAMIN B [Concomitant]
     Active Substance: VITAMIN B
  44. PROMETHAZINE HYDROCHLORIDE [Concomitant]
     Active Substance: PROMETHAZINE HYDROCHLORIDE
  45. ZINC [Concomitant]
     Active Substance: ZINC
  46. BELBUCA [Concomitant]
     Active Substance: BUPRENORPHINE HYDROCHLORIDE
  47. VITAMIN D3 [Concomitant]
     Active Substance: CHOLECALCIFEROL
  48. FAMOTIDINE [Concomitant]
     Active Substance: FAMOTIDINE
  49. SODIUM CHLORIDE [Concomitant]
     Active Substance: SODIUM CHLORIDE
  50. NEXIUM [Concomitant]
     Active Substance: ESOMEPRAZOLE MAGNESIUM
  51. LINZESS [Concomitant]
     Active Substance: LINACLOTIDE
  52. DICYCLOMINE [Concomitant]
     Active Substance: DICYCLOMINE HYDROCHLORIDE
  53. ZOFRAN [Concomitant]
     Active Substance: ONDANSETRON HYDROCHLORIDE
  54. BACTRIM [Concomitant]
     Active Substance: SULFAMETHOXAZOLE\TRIMETHOPRIM
  55. TRAZODONE HCL [Concomitant]
     Active Substance: TRAZODONE HYDROCHLORIDE
  56. ALBUTEROL SULFATE [Concomitant]
     Active Substance: ALBUTEROL SULFATE
  57. SIMETHICONE (DIMETHICONE) [Concomitant]
     Active Substance: DIMETHICONE
  58. PYRIDOXINE HYDROCHLORIDE [Concomitant]
     Active Substance: PYRIDOXINE HYDROCHLORIDE
  59. QVAR REDIHALER [Concomitant]
     Active Substance: BECLOMETHASONE DIPROPIONATE
  60. MORPHINE [Concomitant]
     Active Substance: MORPHINE
  61. LOVENOX [Concomitant]
     Active Substance: ENOXAPARIN SODIUM
  62. BUMETANIDE [Concomitant]
     Active Substance: BUMETANIDE
  63. MIRALAX [Concomitant]
     Active Substance: POLYETHYLENE GLYCOL 3350
  64. NATESTO [Concomitant]
     Active Substance: TESTOSTERONE
  65. SOLU-CORTEF [Concomitant]
     Active Substance: HYDROCORTISONE SODIUM SUCCINATE
  66. CETIRIZINE [Concomitant]
     Active Substance: CETIRIZINE HYDROCHLORIDE
  67. METHADONE [Concomitant]
     Active Substance: METHADONE HYDROCHLORIDE
  68. LEVOTHYROXINE [Concomitant]
     Active Substance: LEVOTHYROXINE
  69. FENOFIBRATE [Concomitant]
     Active Substance: FENOFIBRATE
  70. MUCINEX [Concomitant]
     Active Substance: GUAIFENESIN
  71. FLUCONAZOLE [Concomitant]
     Active Substance: FLUCONAZOLE
  72. MONTELUKAST SODIUM [Concomitant]
     Active Substance: MONTELUKAST SODIUM
  73. LIPITOR [Concomitant]
     Active Substance: ATORVASTATIN CALCIUM
  74. ALBUTEROL SULFATE [Concomitant]
     Active Substance: ALBUTEROL SULFATE
  75. MORPHINE SULFATE [Concomitant]
     Active Substance: MORPHINE SULFATE
  76. ADVAIR HFA [Concomitant]
     Active Substance: FLUTICASONE PROPIONATE\SALMETEROL XINAFOATE
  77. BENADRYL ALLERGY [Concomitant]
     Active Substance: DIPHENHYDRAMINE HYDROCHLORIDE
  78. VITAMIN D2 [Concomitant]
     Active Substance: ERGOCALCIFEROL
  79. TYLENOL [Concomitant]
     Active Substance: ACETAMINOPHEN
  80. CIPRO [Concomitant]
     Active Substance: CIPROFLOXACIN HYDROCHLORIDE
  81. METFORMIN HYDROCHLORIDE [Concomitant]
     Active Substance: METFORMIN HYDROCHLORIDE
  82. CIPROFLOXACIN HYDROCHLORIDE [Concomitant]
     Active Substance: CIPROFLOXACIN HYDROCHLORIDE
  83. DILAUDID [Concomitant]
     Active Substance: HYDROMORPHONE HYDROCHLORIDE
  84. PROTONIX [Concomitant]
     Active Substance: PANTOPRAZOLE SODIUM
  85. ALBUTEROL [Concomitant]
     Active Substance: ALBUTEROL
  86. DIPHENHYDRAMINE [Concomitant]
     Active Substance: DIPHENHYDRAMINE
  87. TEFLARO [Concomitant]
     Active Substance: CEFTAROLINE FOSAMIL
  88. ROCEPHIN [Concomitant]
     Active Substance: CEFTRIAXONE SODIUM
  89. FLAGYL [Concomitant]
     Active Substance: METRONIDAZOLE\METRONIDAZOLE HYDROCHLORIDE
  90. CEFTAZIDIME [Concomitant]
     Active Substance: CEFTAZIDIME
  91. LANTUS [Concomitant]
     Active Substance: INSULIN GLARGINE
  92. PANTOPRAZOLE SODIUM [Concomitant]
     Active Substance: PANTOPRAZOLE SODIUM
  93. CYMBALTA [Concomitant]
     Active Substance: DULOXETINE HYDROCHLORIDE
  94. HYDROMORPHONE HCL [Concomitant]
     Active Substance: HYDROMORPHONE HYDROCHLORIDE
  95. VITAMIN D [Concomitant]
     Active Substance: VITAMIN D NOS
  96. PYRIDOXINE HYDROCHLORIDE [Concomitant]
     Active Substance: PYRIDOXINE HYDROCHLORIDE
  97. PROMETHAZINE HYDROCHLORIDE [Concomitant]
     Active Substance: PROMETHAZINE HYDROCHLORIDE
  98. TRAZODONE [Concomitant]
     Active Substance: TRAZODONE HYDROCHLORIDE
  99. SPIRIVA RESPIMAT [Concomitant]
     Active Substance: TIOTROPIUM BROMIDE
  100. DEXAMETHASONE [Concomitant]
     Active Substance: DEXAMETHASONE
  101. SODIUM [Concomitant]
     Active Substance: SODIUM
  102. FINASTERIDE [Concomitant]
     Active Substance: FINASTERIDE
  103. DOXYCYCLINE HYCLATE [Concomitant]
     Active Substance: DOXYCYCLINE HYCLATE
  104. ONDANSETRON HYDROCHLORIDE [Concomitant]
     Active Substance: ONDANSETRON HYDROCHLORIDE
  105. PSEUDOEPHEDRINE HYDROCHLORIDE [Concomitant]
     Active Substance: PSEUDOEPHEDRINE HYDROCHLORIDE
  106. INJECTAFER [Concomitant]
     Active Substance: FERRIC CARBOXYMALTOSE

REACTIONS (69)
  - Sepsis [Unknown]
  - Pneumonia [Not Recovered/Not Resolved]
  - Vascular device infection [Unknown]
  - Osteomyelitis [Unknown]
  - Limb injury [Unknown]
  - Device dislocation [Unknown]
  - Cardiac dysfunction [Unknown]
  - Rectal haemorrhage [Unknown]
  - Gastrointestinal haemorrhage [Unknown]
  - Haemoglobin decreased [Unknown]
  - Full blood count decreased [Unknown]
  - Dysphagia [Recovered/Resolved]
  - Infusion related reaction [Recovered/Resolved]
  - Pharyngeal swelling [Unknown]
  - Throat irritation [Recovered/Resolved]
  - Gingivitis [Unknown]
  - Dysphonia [Unknown]
  - Catheter site discharge [Unknown]
  - Constipation [Unknown]
  - Malabsorption [Unknown]
  - Gastrointestinal sounds abnormal [Unknown]
  - Toothache [Recovered/Resolved]
  - Tooth abscess [Unknown]
  - Wound complication [Unknown]
  - Blood glucose increased [Unknown]
  - Productive cough [Unknown]
  - Depression [Unknown]
  - Discouragement [Unknown]
  - Diplopia [Unknown]
  - Gait disturbance [Unknown]
  - Mobility decreased [Unknown]
  - Gastrooesophageal reflux disease [Unknown]
  - Skin lesion [Unknown]
  - Mastication disorder [Unknown]
  - Tooth infection [Unknown]
  - Localised infection [Not Recovered/Not Resolved]
  - Respiratory tract infection [Unknown]
  - Dehydration [Unknown]
  - Breath sounds abnormal [Unknown]
  - Abdominal hernia [Unknown]
  - Wound haemorrhage [Unknown]
  - Product dose omission issue [Unknown]
  - Ligament sprain [Unknown]
  - Epistaxis [Unknown]
  - Abdominal discomfort [Unknown]
  - Throat tightness [Unknown]
  - Pain [Unknown]
  - Insomnia [Unknown]
  - Abdominal distension [Unknown]
  - Muscular weakness [Unknown]
  - Chest pain [Unknown]
  - Rash [Unknown]
  - Pain in extremity [Unknown]
  - Anxiety [Unknown]
  - Oedema [Unknown]
  - Chest discomfort [Unknown]
  - Hyperhidrosis [Unknown]
  - Asthenia [Unknown]
  - Back pain [Recovered/Resolved]
  - Dyspnoea [Unknown]
  - Vomiting [Unknown]
  - Diarrhoea [Unknown]
  - Abdominal pain [Recovered/Resolved]
  - Arthralgia [Recovered/Resolved]
  - Headache [Recovered/Resolved]
  - Fatigue [Unknown]
  - Pruritus [Recovered/Resolved]
  - Nausea [Unknown]
  - Dizziness [Unknown]
